FAERS Safety Report 4819218-9 (Version None)
Quarter: 2005Q4

REPORT INFORMATION
  Report Type: 
  Country: None (occurrence: None)
  Receive Date: 20051103
  Receipt Date: 20051024
  Transmission Date: 20060501
  Serious: Yes (Hospitalization)
  Sender: FDA-Public Use
  Company Number: FR-GLAXOSMITHKLINE-B0398647A

PATIENT
  Age: 50 Year
  Sex: Male
  Weight: 72 kg

DRUGS (8)
  1. RETROVIR [Suspect]
     Indication: HIV INFECTION
     Route: 048
     Dates: start: 19981026, end: 20041007
  2. COMBIVIR [Suspect]
     Indication: HIV INFECTION
     Route: 065
     Dates: start: 20041007, end: 20050503
  3. EPIVIR [Concomitant]
     Indication: HIV INFECTION
     Route: 065
     Dates: start: 19981026, end: 20041007
  4. ALDACTONE [Concomitant]
     Route: 065
  5. LASILIX [Concomitant]
     Route: 065
  6. INVIRASE [Concomitant]
     Route: 065
  7. NORVIR [Concomitant]
     Route: 065
  8. SPECIAFOLDINE [Concomitant]
     Route: 065

REACTIONS (4)
  - ANAEMIA [None]
  - ASCITES [None]
  - HEPATIC NEOPLASM MALIGNANT [None]
  - THROMBOCYTOPENIA [None]
